FAERS Safety Report 8615256-9 (Version None)
Quarter: 2012Q3

REPORT INFORMATION
  Report Type: 
  Country: None (occurrence: None)
  Receive Date: 20120823
  Receipt Date: 20120814
  Transmission Date: 20120928
  Serious: Yes (Disabling)
  Sender: FDA-Public Use
  Company Number: GB-009507513-1208GBR007732

PATIENT

DRUGS (2)
  1. PROPECIA [Suspect]
     Indication: ALOPECIA
     Dosage: UNK
     Route: 048
     Dates: start: 20120515, end: 20120615
  2. RANITIDINE [Concomitant]

REACTIONS (1)
  - TESTICULAR ATROPHY [None]
